FAERS Safety Report 13618324 (Version 2)
Quarter: 2017Q3

REPORT INFORMATION
  Report Type: Spontaneous
  Country: US (occurrence: US)
  Receive Date: 20170606
  Receipt Date: 20170706
  Transmission Date: 20171127
  Serious: No
  Sender: FDA-Public Use
  Company Number: US-JNJFOC-20170418854

PATIENT
  Age: 72 Year
  Sex: Male
  Weight: 86.18 kg

DRUGS (19)
  1. PEPCID [Concomitant]
     Active Substance: FAMOTIDINE
     Indication: GASTROOESOPHAGEAL REFLUX DISEASE
     Dosage: ONE TABLESPOON
     Route: 065
  2. ALOSETRON [Concomitant]
     Active Substance: ALOSETRON
     Indication: GASTRIC DISORDER
     Dosage: ONE TABLESPOON
     Route: 065
  3. GLUCOSAMINE AND CHONDROITIN WITH MSM [Concomitant]
     Indication: ARTHRALGIA
     Dosage: ONE TABLESPOON
     Route: 065
  4. COENZYME Q10 [Concomitant]
     Active Substance: UBIDECARENONE
     Dosage: ONE TABLESPOON
     Route: 065
  5. FIBERCON [Concomitant]
     Active Substance: CALCIUM POLYCARBOPHIL
     Indication: FREQUENT BOWEL MOVEMENTS
     Dosage: ONE TABLESPOON
     Route: 065
  6. FLAXSEED [Concomitant]
     Active Substance: FLAX SEED
     Indication: EYE DISORDER
     Dosage: ONE TABLESPOON
     Route: 065
  7. OMEGA 3 [Concomitant]
     Active Substance: OMEGA-3 FATTY ACIDS
     Indication: LACRIMATION DECREASED
     Dosage: ONE TABLESPOON
     Route: 065
  8. IMODIUM A-D [Suspect]
     Active Substance: LOPERAMIDE HYDROCHLORIDE
     Indication: DIARRHOEA
     Dosage: ONE TABLESPOON
     Route: 048
  9. WELLBUTRIN [Concomitant]
     Active Substance: BUPROPION HYDROCHLORIDE
     Indication: ANXIETY
     Dosage: ONE TABLESPOON
     Route: 065
  10. FLORESTOR [Concomitant]
     Indication: PROBIOTIC THERAPY
     Dosage: ONE TABLESPOON
     Route: 065
  11. OMEGA 3 [Concomitant]
     Active Substance: OMEGA-3 FATTY ACIDS
     Indication: DRY EYE
     Dosage: ONE TABLESPOON
     Route: 065
  12. PEPCID [Concomitant]
     Active Substance: FAMOTIDINE
     Indication: ANTACID THERAPY
     Dosage: ONE TABLESPOON
     Route: 065
  13. RAPAFLO [Concomitant]
     Active Substance: SILODOSIN
     Indication: PROSTATOMEGALY
     Dosage: ONE TABLESPOON
     Route: 065
  14. PROSCAR [Concomitant]
     Active Substance: FINASTERIDE
     Indication: PROSTATOMEGALY
     Dosage: ONE TABLESPOON
     Route: 065
  15. LUTEIN [Concomitant]
     Active Substance: LUTEIN
     Indication: EYE DEGENERATIVE DISORDER
     Dosage: ONE TABLESPOON
     Route: 065
  16. FLAXSEED [Concomitant]
     Active Substance: FLAX SEED
     Indication: DRY EYE
     Dosage: ONE TABLESPOON
     Route: 065
  17. IMODIUM A-D [Suspect]
     Active Substance: LOPERAMIDE HYDROCHLORIDE
     Indication: DIARRHOEA
     Dosage: TOOK 2 TEASPOONS
     Route: 048
     Dates: start: 20170609
  18. CIALIS [Concomitant]
     Active Substance: TADALAFIL
     Indication: PROSTATOMEGALY
     Dosage: ONE TABLESPOON
     Route: 065
  19. BUSPAR [Concomitant]
     Active Substance: BUSPIRONE HYDROCHLORIDE
     Indication: ANXIETY
     Dosage: ONE TABLESPOON
     Route: 065

REACTIONS (1)
  - Pollakiuria [Not Recovered/Not Resolved]

NARRATIVE: CASE EVENT DATE: 20170609
